FAERS Safety Report 16242171 (Version 1)
Quarter: 2019Q2

REPORT INFORMATION
  Report Type: Report from Study
  Country: IT (occurrence: IT)
  Receive Date: 20190426
  Receipt Date: 20190426
  Transmission Date: 20190711
  Serious: Yes (Other)
  Sender: FDA-Public Use
  Company Number: IT-TEVA-2019-IT-1042296

PATIENT
  Age: 73 Year
  Sex: Female

DRUGS (7)
  1. DOXAZOSIN [Concomitant]
     Active Substance: DOXAZOSIN\DOXAZOSIN MESYLATE
     Dosage: 1 MILLIGRAM DAILY;
  2. ATORVASTATIN [Concomitant]
     Active Substance: ATORVASTATIN
     Dosage: 10 MILLIGRAM DAILY;
  3. SONIREM 10 MG /ML GOCCE ORALI, SOLUZIONE [Suspect]
     Active Substance: ZOLPIDEM TARTRATE
  4. REPAGLINIDE. [Concomitant]
     Active Substance: REPAGLINIDE
     Dosage: 2 MILLIGRAM DAILY;
  5. METFORMIN [Concomitant]
     Active Substance: METFORMIN HYDROCHLORIDE
     Dosage: 2000 MILLIGRAM DAILY;
  6. ANAFRANIL [Concomitant]
     Active Substance: CLOMIPRAMINE HYDROCHLORIDE
     Dosage: 75 MILLIGRAM DAILY;
  7. MIRTAZAPINE. [Suspect]
     Active Substance: MIRTAZAPINE

REACTIONS (5)
  - Swelling [Unknown]
  - Toxicity to various agents [Unknown]
  - Hypertension [Unknown]
  - Mouth haemorrhage [Unknown]
  - Cognitive disorder [Unknown]

NARRATIVE: CASE EVENT DATE: 20190107
